FAERS Safety Report 10063294 (Version 1)
Quarter: 2014Q2

REPORT INFORMATION
  Report Type: Spontaneous
  Country: CA (occurrence: CA)
  Receive Date: 20140407
  Receipt Date: 20140407
  Transmission Date: 20141212
  Serious: Yes (Hospitalization)
  Sender: FDA-Public Use
  Company Number: CA-009507513-1404CAN000522

PATIENT
  Age: 53 Year
  Sex: Female

DRUGS (3)
  1. VICTRELIS [Suspect]
     Indication: CHRONIC HEPATITIS C
     Dosage: 800 MG, THRICE DAILY
     Route: 048
     Dates: start: 20131002
  2. COPEGUS [Suspect]
     Indication: CHRONIC HEPATITIS C
     Dosage: 1000 MG 1 IN 1 DAY (35 TABLET/WEEK)
     Route: 048
     Dates: start: 20131002, end: 20140206
  3. PEGASYS [Suspect]
     Indication: CHRONIC HEPATITIS C
     Dosage: 180 MICROGRAM, 1 IN 1 WEEK (0.5 ML PRE-FILLED SYRINGE)
     Route: 058
     Dates: start: 20131002, end: 20140206

REACTIONS (1)
  - Full blood count decreased [Unknown]
